FAERS Safety Report 6726071-5 (Version None)
Quarter: 2010Q2

REPORT INFORMATION
  Report Type: 
  Country: None (occurrence: None)
  Receive Date: 20100514
  Receipt Date: 20100430
  Transmission Date: 20101027
  Serious: Yes (Other)
  Sender: FDA-Public Use
  Company Number: GB-ELI_LILLY_AND_COMPANY-GB201004005089

PATIENT
  Age: 55 Year
  Sex: Female

DRUGS (5)
  1. FLUOXETINE [Suspect]
     Indication: DEPRESSION
     Dosage: UNK, UNKNOWN
     Route: 065
     Dates: start: 20091201
  2. FLUOXETINE [Suspect]
     Dosage: 40 MG, DAILY (1/D)
     Route: 048
     Dates: start: 20100321, end: 20100325
  3. ADCAL [Concomitant]
     Indication: OSTEOPOROSIS
     Dosage: 2 D/F, DAILY (1/D)
     Route: 048
     Dates: start: 20081001
  4. IBUPROFEN [Concomitant]
     Indication: FIBROMYALGIA
     Dosage: 400 MG, DAILY (1/D)
     Route: 048
  5. PARACETAMOL [Concomitant]
     Indication: FIBROMYALGIA
     Dosage: 2 D/F, UNK
     Route: 048

REACTIONS (5)
  - PANIC ATTACK [None]
  - PARANOIA [None]
  - PRODUCT QUALITY ISSUE [None]
  - SUICIDAL IDEATION [None]
  - TEARFULNESS [None]
